FAERS Safety Report 4324772-X (Version None)
Quarter: 2004Q1

REPORT INFORMATION
  Report Type: 
  Country: None (occurrence: None)
  Receive Date: 20040326
  Receipt Date: 20040204
  Transmission Date: 20041129
  Serious: Yes (Hospitalization, Other)
  Sender: FDA-Public Use
  Company Number: US-GLAXOSMITHKLINE-A0496647A

PATIENT
  Age: 44 Year
  Sex: Female

DRUGS (9)
  1. PAXIL [Suspect]
     Indication: DEPRESSION
     Dosage: 30MG PER DAY
     Route: 048
     Dates: start: 19990201, end: 19991201
  2. TEMAZEPAM [Suspect]
     Route: 048
  3. DILANTIN [Concomitant]
  4. PHENOBARBITAL TAB [Concomitant]
  5. ESTRADIOL [Concomitant]
  6. TOPAMAX [Concomitant]
  7. MIDRIN [Concomitant]
  8. HYDROCHLOROTHIAZIDE [Concomitant]
  9. BAYCOL [Concomitant]

REACTIONS (3)
  - DRUG INEFFECTIVE [None]
  - OVERDOSE [None]
  - SUICIDE ATTEMPT [None]
